FAERS Safety Report 12891553 (Version 2)
Quarter: 2016Q4

REPORT INFORMATION
  Report Type: Report from Study
  Country: None (occurrence: ZA)
  Receive Date: 20161028
  Receipt Date: 20161110
  Transmission Date: 20170207
  Serious: Yes (Hospitalization)
  Sender: FDA-Public Use
  Company Number: ZA-ABBVIE-16K-143-1755399-00

PATIENT
  Age: 50 Year
  Sex: Male

DRUGS (2)
  1. HUMIRA [Suspect]
     Active Substance: ADALIMUMAB
     Indication: CROHN^S DISEASE
  2. HUMIRA [Suspect]
     Active Substance: ADALIMUMAB
     Indication: RHEUMATOID ARTHRITIS
     Route: 058
     Dates: start: 201608, end: 20160926

REACTIONS (3)
  - Malaise [Unknown]
  - Pneumonia klebsiella [Unknown]
  - Respiratory failure [Unknown]

NARRATIVE: CASE EVENT DATE: 2016
